FAERS Safety Report 7553735-6 (Version None)
Quarter: 2011Q2

REPORT INFORMATION
  Report Type: 
  Country: None (occurrence: None)
  Receive Date: 20110614
  Receipt Date: 20110614
  Transmission Date: 20111010
  Serious: Yes (Other)
  Sender: FDA-Public Use
  Company Number: None

PATIENT
  Age: 73 Year
  Sex: Female
  Weight: 68.0396 kg

DRUGS (2)
  1. RECLAST [Suspect]
     Indication: OSTEOPENIA
     Dosage: ONCE IV
     Route: 042
     Dates: start: 20110414, end: 20110414
  2. RECLAST [Suspect]
     Dates: start: 20110414, end: 20110414

REACTIONS (4)
  - IMMEDIATE POST-INJECTION REACTION [None]
  - QUALITY OF LIFE DECREASED [None]
  - MOBILITY DECREASED [None]
  - PAIN [None]
